FAERS Safety Report 8467767-7 (Version None)
Quarter: 2012Q2

REPORT INFORMATION
  Report Type: 
  Country: None (occurrence: None)
  Receive Date: 20120626
  Receipt Date: 20120622
  Transmission Date: 20120825
  Serious: Yes (Hospitalization, Other)
  Sender: FDA-Public Use
  Company Number: GB-ROCHE-1043840

PATIENT
  Sex: Male
  Weight: 78 kg

DRUGS (5)
  1. PREDNISONE TAB [Concomitant]
  2. AZULFIDINE [Concomitant]
  3. MABTHERA [Suspect]
     Indication: RHEUMATOID ARTHRITIS
     Dosage: LAST DOSE PRIOR TO SAE: 27 MAY 2011
     Route: 065
     Dates: start: 20110510
  4. ADCAL [Concomitant]
  5. ALENDRONATE SODIUM [Concomitant]

REACTIONS (2)
  - WOUND DEHISCENCE [None]
  - METASTATIC MALIGNANT MELANOMA [None]
